FAERS Safety Report 21117266 (Version 1)
Quarter: 2022Q3

REPORT INFORMATION
  Report Type: Spontaneous
  Country: FR (occurrence: FR)
  Receive Date: 20220722
  Receipt Date: 20220722
  Transmission Date: 20221026
  Serious: Yes (Congenital Anomaly)
  Sender: FDA-Public Use
  Company Number: FR-SUN PHARMACEUTICAL INDUSTRIES LTD-2022RR-345717

PATIENT

DRUGS (3)
  1. SUMATRIPTAN [Suspect]
     Active Substance: SUMATRIPTAN
     Indication: Migraine
     Dosage: 1-2 TIMES/MONTH
     Route: 065
     Dates: start: 20220504
  2. SUMATRIPTAN [Suspect]
     Active Substance: SUMATRIPTAN
     Indication: Migraine
     Dosage: THE MOTHER TOOK 20MG NASALLY ONCE A WEEK UNTIL 4.5 MONTHS OF PREGNANCY
     Route: 065
     Dates: start: 20220119, end: 20220504
  3. ELETRIPTAN [Suspect]
     Active Substance: ELETRIPTAN
     Indication: Migraine
     Dosage: THE MOTHER TOOK 1-2 DOSES/DAY (ORAL) DURING HER 1ST MONTH OF PREGNANCY
     Route: 065
     Dates: start: 20211220, end: 20220119

REACTIONS (2)
  - Microcephaly [Not Recovered/Not Resolved]
  - Foetal growth restriction [Not Recovered/Not Resolved]
